FAERS Safety Report 19872816 (Version 1)
Quarter: 2021Q3

REPORT INFORMATION
  Report Type: Spontaneous
  Country: US (occurrence: US)
  Receive Date: 20210923
  Receipt Date: 20210923
  Transmission Date: 20211014
  Serious: No
  Sender: FDA-Public Use
  Company Number: US-CELGENEUS-USA-20210903871

PATIENT
  Sex: Female

DRUGS (1)
  1. REVLIMID [Suspect]
     Active Substance: LENALIDOMIDE
     Indication: MYELODYSPLASTIC SYNDROME
     Dosage: DOSE : 5 MG;     FREQ : ONE DAILY FOR 21 DAYS ON, 7 DAY BREAK.
     Route: 048
     Dates: start: 20210820

REACTIONS (1)
  - Drug ineffective [Unknown]
